FAERS Safety Report 17703456 (Version 1)
Quarter: 2020Q2

REPORT INFORMATION
  Report Type: Spontaneous
  Country: MY (occurrence: MY)
  Receive Date: 20200424
  Receipt Date: 20200424
  Transmission Date: 20200714
  Serious: Yes (Hospitalization, Other)
  Sender: FDA-Public Use
  Company Number: MY-IPCA LABORATORIES LIMITED-IPC-2020-MY-001264

PATIENT

DRUGS (1)
  1. WARFARIN [Suspect]
     Active Substance: WARFARIN
     Indication: ANTICOAGULANT THERAPY
     Dosage: UNK
     Route: 065
     Dates: start: 201603

REACTIONS (4)
  - Incontinence [Recovering/Resolving]
  - Coagulopathy [Recovering/Resolving]
  - Spinal epidural haematoma [Recovering/Resolving]
  - International normalised ratio increased [Unknown]
